FAERS Safety Report 22294063 (Version 2)
Quarter: 2023Q2

REPORT INFORMATION
  Report Type: Spontaneous
  Country: GR (occurrence: GR)
  Receive Date: 20230508
  Receipt Date: 20230628
  Transmission Date: 20230722
  Serious: No
  Sender: FDA-Public Use
  Company Number: GR-PFIZER INC-PV202300076703

PATIENT
  Age: 15 Year
  Sex: Male
  Weight: 62 kg

DRUGS (2)
  1. GENOTROPIN [Suspect]
     Active Substance: SOMATROPIN
     Indication: Growth hormone deficiency
     Dosage: UNK/UNK/12 MG PEN
     Route: 058
     Dates: start: 202112
  2. GENOTROPIN [Suspect]
     Active Substance: SOMATROPIN
     Indication: Growth hormone deficiency
     Dosage: UNK/UNK/12 MG PEN
     Route: 058
     Dates: start: 202112

REACTIONS (1)
  - Wrong technique in device usage process [Unknown]
